FAERS Safety Report 4754273-6 (Version None)
Quarter: 2005Q3

REPORT INFORMATION
  Report Type: 
  Country: None (occurrence: None)
  Receive Date: 20050825
  Receipt Date: 20050822
  Transmission Date: 20060218
  Serious: Yes (Death)
  Sender: FDA-Public Use
  Company Number: 805#1#2005-00055

PATIENT
  Age: 65 Year
  Sex: 0

DRUGS (4)
  1. ALPROSTADIL [Suspect]
     Indication: ATHEROSCLEROSIS OBLITERANS
     Dosage: 80 MCG (40 MCG 2 IN 1 DAY (S) )
     Route: 041
     Dates: start: 20050729, end: 20050802
  2. AMLODIPINE BESYLATE [Concomitant]
  3. ATORVASTATIN-CALCIUM-HYDRATE (ATORVASTATIN) [Concomitant]
  4. CANDESARTAN-CILEXETIL (CANDESARTAN CILEXETIL) [Concomitant]

REACTIONS (1)
  - CARDIAC FAILURE [None]
